FAERS Safety Report 5214774-3 (Version None)
Quarter: 2006Q4

REPORT INFORMATION
  Report Type: 
  Country: None (occurrence: None)
  Receive Date: 20061113
  Receipt Date: 20051221
  Transmission Date: 20070319
  Serious: Yes (Hospitalization)
  Sender: FDA-Public Use
  Company Number: US-JNJFOC-20051103717

PATIENT
  Age: 73 Year
  Sex: Male
  Weight: 77.1115 kg

DRUGS (7)
  1. LEVAQUIN [Suspect]
     Indication: PNEUMONIA
     Dosage: 500 MG, 1 IN 1 DAY, INTRAVENOUS
     Route: 042
     Dates: start: 20051101, end: 20051111
  2. LEVAQUIN [Suspect]
     Indication: PNEUMONIA
     Dosage: 500 MG, 1 IN 1 DAY, ORAL
     Route: 048
     Dates: start: 20051031, end: 20051101
  3. COZAR (LOSARTAN POTASSIUM) [Concomitant]
  4. VANCOMYCIN [Concomitant]
  5. MAXAQUIN [Concomitant]
  6. PROCRIT [Concomitant]
  7. NEUPOGEN [Concomitant]

REACTIONS (1)
  - PYREXIA [None]
